FAERS Safety Report 7288906-X (Version None)
Quarter: 2011Q1

REPORT INFORMATION
  Report Type: 
  Country: None (occurrence: None)
  Receive Date: 20110201
  Receipt Date: 20110121
  Transmission Date: 20110831
  Serious: Yes (Other)
  Sender: FDA-Public Use
  Company Number: 2010US002063

PATIENT
  Age: 41 Year
  Sex: Female

DRUGS (7)
  1. VESICARE [Suspect]
     Indication: URINARY TRACT PAIN
     Dosage: 5 MG, /D, ORAL; 10 MG /D, ORAL
     Route: 048
     Dates: end: 20100401
  2. VESICARE [Suspect]
     Indication: URINARY TRACT DISORDER
     Dosage: 5 MG, /D, ORAL; 10 MG /D, ORAL
     Route: 048
     Dates: end: 20100401
  3. VESICARE [Suspect]
     Indication: BLADDER SPASM
     Dosage: 5 MG, /D, ORAL; 10 MG /D, ORAL
     Route: 048
     Dates: end: 20100401
  4. VESICARE [Suspect]
     Indication: URINARY TRACT PAIN
     Dosage: 5 MG, /D, ORAL; 10 MG /D, ORAL
     Route: 048
     Dates: start: 20070101
  5. VESICARE [Suspect]
     Indication: URINARY TRACT DISORDER
     Dosage: 5 MG, /D, ORAL; 10 MG /D, ORAL
     Route: 048
     Dates: start: 20070101
  6. VESICARE [Suspect]
     Indication: BLADDER SPASM
     Dosage: 5 MG, /D, ORAL; 10 MG /D, ORAL
     Route: 048
     Dates: start: 20070101
  7. UREX (NITROFURANTOIN) [Concomitant]

REACTIONS (14)
  - LOSS OF CONSCIOUSNESS [None]
  - GESTATIONAL DIABETES [None]
  - DRY EYE [None]
  - DRUG EXPOSURE DURING PREGNANCY [None]
  - PREMATURE LABOUR [None]
  - EYE INFECTION [None]
  - URINARY RETENTION [None]
  - SURGICAL PROCEDURE REPEATED [None]
  - PREGNANCY [None]
  - URINARY TRACT PAIN [None]
  - GENITOURINARY OPERATION [None]
  - PLACENTAL DISORDER [None]
  - NODULE [None]
  - ROAD TRAFFIC ACCIDENT [None]
